FAERS Safety Report 5182391-X (Version None)
Quarter: 2006Q4

REPORT INFORMATION
  Report Type: 
  Country: None (occurrence: None)
  Receive Date: 20061220
  Receipt Date: 20060823
  Transmission Date: 20070319
  Serious: No
  Sender: FDA-Public Use
  Company Number: US-GLAXOSMITHKLINE-A0617790A

PATIENT
  Age: 69 Year

DRUGS (1)
  1. COMMIT [Suspect]
     Dates: start: 20060822, end: 20060822

REACTIONS (4)
  - DIZZINESS [None]
  - MUSCULAR WEAKNESS [None]
  - NAUSEA [None]
  - VOMITING [None]
